FAERS Safety Report 12037072 (Version 1)
Quarter: 2016Q1

REPORT INFORMATION
  Report Type: Spontaneous
  Country: US (occurrence: None)
  Receive Date: 20160205
  Receipt Date: 20160205
  Transmission Date: 20160526
  Serious: No
  Sender: FDA-Public Use
  Company Number: None

PATIENT

DRUGS (4)
  1. BUPROPION HYDROCHLORIDE. [Suspect]
     Active Substance: BUPROPION HYDROCHLORIDE
  2. DULOXETINE. [Concomitant]
     Active Substance: DULOXETINE
  3. PRENATAL VITAMINS [Concomitant]
     Active Substance: VITAMINS
  4. LORATIDINE [Concomitant]
     Active Substance: LORATADINE

REACTIONS (6)
  - Dizziness [None]
  - Fatigue [None]
  - Nausea [None]
  - Chest pain [None]
  - Muscular weakness [None]
  - Feeling abnormal [None]

NARRATIVE: CASE EVENT DATE: 20160129
